FAERS Safety Report 25860678 (Version 2)
Quarter: 2025Q4

REPORT INFORMATION
  Report Type: Spontaneous
  Country: US (occurrence: US)
  Receive Date: 20250929
  Receipt Date: 20251001
  Transmission Date: 20260118
  Serious: No
  Sender: GRIFOLS
  Company Number: US-IGSA-BIG0038137

PATIENT
  Age: 49 Year
  Sex: Female
  Weight: 60.3 kg

DRUGS (6)
  1. GAMUNEX-C [Suspect]
     Active Substance: HUMAN IMMUNOGLOBULIN G
     Indication: Hypogammaglobulinaemia
     Dosage: 20 GRAM, Q.M.T.
     Route: 042
     Dates: start: 20250915, end: 20250915
  2. GAMUNEX-C [Suspect]
     Active Substance: HUMAN IMMUNOGLOBULIN G
     Dosage: 20 GRAM, Q.M.T.
     Route: 042
     Dates: start: 20250915, end: 20250915
  3. GAMUNEX-C [Suspect]
     Active Substance: HUMAN IMMUNOGLOBULIN G
     Dosage: 20 GRAM, Q.M.T.
     Route: 042
     Dates: start: 2024
  4. TYLENOL [Concomitant]
     Active Substance: ACETAMINOPHEN
     Indication: Premedication
     Dosage: 650 MILLIGRAM, SINGLE
     Route: 048
     Dates: start: 20250915, end: 20250915
  5. ZYRTEC [Concomitant]
     Active Substance: CETIRIZINE HYDROCHLORIDE
     Indication: Premedication
     Dosage: 10 MILLIGRAM, SINGLE
     Route: 048
     Dates: start: 20250915, end: 20250915
  6. SODIUM CHLORIDE [Concomitant]
     Active Substance: SODIUM CHLORIDE
     Dosage: 2 LITER
     Route: 065

REACTIONS (4)
  - Lip swelling [Recovered/Resolved]
  - Chest discomfort [Recovered/Resolved]
  - Throat tightness [Recovered/Resolved]
  - Hypotension [Recovered/Resolved]

NARRATIVE: CASE EVENT DATE: 20250915
